FAERS Safety Report 8964620 (Version 2)
Quarter: 2013Q1

REPORT INFORMATION
  Report Type: Spontaneous
  Country: US (occurrence: US)
  Receive Date: 20121213
  Receipt Date: 20130110
  Transmission Date: 20140127
  Serious: No
  Sender: FDA-Public Use
  Company Number: US-009507513-1212USA004546

PATIENT
  Sex: Female
  Weight: 70.3 kg

DRUGS (2)
  1. IMPLANON [Suspect]
     Indication: CONTRACEPTION
     Dosage: 68 MG/3 YEARS
     Route: 059
     Dates: start: 20121008, end: 20121012
  2. IMPLANON [Suspect]
     Dosage: 68 MG/3 YEARS
     Route: 059
     Dates: start: 20121012

REACTIONS (1)
  - Device dislocation [Recovered/Resolved]
